FAERS Safety Report 12482763 (Version 9)
Quarter: 2020Q1

REPORT INFORMATION
  Report Type: Report from Study
  Country: JP (occurrence: JP)
  Receive Date: 20160620
  Receipt Date: 20200105
  Transmission Date: 20200409
  Serious: Yes (Death, Hospitalization, Other)
  Sender: FDA-Public Use
  Company Number: PHJP2016JP016880

PATIENT
  Age: 15 Year
  Sex: Female
  Weight: 44 kg

DRUGS (20)
  1. EVEROLIMUS TABLETS CE [Suspect]
     Active Substance: EVEROLIMUS
     Dosage: 0.38 MG, UNK
     Route: 048
     Dates: start: 20151221
  2. PROGRAF [Concomitant]
     Active Substance: TACROLIMUS
     Indication: HEART TRANSPLANT
     Dosage: 1 MG, UNK
     Route: 048
     Dates: start: 20140901, end: 20141222
  3. PREDONINE [Concomitant]
     Active Substance: PREDNISOLONE
     Dosage: 2.5 MG, UNK
     Route: 048
     Dates: start: 20150311, end: 20150506
  4. PROGRAF [Concomitant]
     Active Substance: TACROLIMUS
     Dosage: 2.0 MG, UNK
     Route: 048
     Dates: start: 20150414, end: 20151104
  5. EVEROLIMUS TABLETS CE [Suspect]
     Active Substance: EVEROLIMUS
     Indication: PROPHYLAXIS AGAINST TRANSPLANT REJECTION
     Dosage: 0.25 MG, UNK
     Route: 048
     Dates: start: 20150414, end: 20150603
  6. PREDONINE [Concomitant]
     Active Substance: PREDNISOLONE
     Dosage: 1.5 MG, UNK
     Route: 048
     Dates: start: 20150507, end: 20150902
  7. PREDONINE [Concomitant]
     Active Substance: PREDNISOLONE
     Indication: HEART TRANSPLANT
     Dosage: 10 MG, UNK
     Route: 048
     Dates: start: 20141109, end: 20150216
  8. PREDONINE [Concomitant]
     Active Substance: PREDNISOLONE
     Dosage: 5 MG, UNK
     Route: 048
     Dates: start: 20150217, end: 20150310
  9. PROGRAF [Concomitant]
     Active Substance: TACROLIMUS
     Dosage: 0.7 MG, UNK
     Route: 048
     Dates: start: 20141223, end: 20150413
  10. PROGRAF [Concomitant]
     Active Substance: TACROLIMUS
     Dosage: 1.6 MG, UNK
     Route: 048
     Dates: start: 20151105, end: 20151207
  11. EVEROLIMUS TABLETS CE [Suspect]
     Active Substance: EVEROLIMUS
     Indication: HEART TRANSPLANT
     Dosage: 0.5 MG, QD
     Route: 048
     Dates: start: 20141223, end: 20150413
  12. EVEROLIMUS TABLETS CE [Suspect]
     Active Substance: EVEROLIMUS
     Dosage: 0.31 MG, UNK
     Route: 048
     Dates: start: 20150604, end: 20151220
  13. PROGRAF [Concomitant]
     Active Substance: TACROLIMUS
     Dosage: 1.8 MG, UNK
     Route: 048
     Dates: start: 20151208
  14. BAKTAR [Concomitant]
     Active Substance: SULFAMETHOXAZOLE\TRIMETHOPRIM
     Indication: PROPHYLAXIS
     Dosage: 2 DF, QW3
     Route: 048
     Dates: start: 20141118
  15. LIPITOR [Concomitant]
     Active Substance: ATORVASTATIN CALCIUM
     Indication: PROPHYLAXIS
     Dosage: 10 MG, UNK
     Route: 048
     Dates: start: 20140927
  16. LASIX [Concomitant]
     Active Substance: FUROSEMIDE
     Indication: RENAL IMPAIRMENT
     Dosage: 60 MG, UNK
     Route: 048
     Dates: start: 20141222, end: 20141225
  17. MYCOPHENOLATE [Concomitant]
     Active Substance: MYCOPHENOLIC ACID
     Indication: HEART TRANSPLANT
     Dosage: 375 MG, UNK
     Route: 048
     Dates: start: 20141217, end: 20150112
  18. LASIX [Concomitant]
     Active Substance: FUROSEMIDE
     Indication: CARDIAC FAILURE
     Dosage: 90 MG, UNK
     Route: 048
     Dates: start: 20141226
  19. SIMULECT [Suspect]
     Active Substance: BASILIXIMAB
     Indication: HEART TRANSPLANT
     Dosage: UNK
     Route: 042
  20. VALIXA [Concomitant]
     Active Substance: VALGANCICLOVIR
     Indication: PROPHYLAXIS
     Dosage: 450 MG, UNK
     Route: 048
     Dates: start: 20150123, end: 20150126

REACTIONS (14)
  - Pyrexia [Recovered/Resolved]
  - Nephrogenic anaemia [Recovering/Resolving]
  - Concomitant disease progression [Fatal]
  - Hepatic function abnormal [Not Recovered/Not Resolved]
  - Respiratory failure [Fatal]
  - Blood uric acid increased [Unknown]
  - Blood urea increased [Unknown]
  - Blood potassium increased [Unknown]
  - Hypoxia [Fatal]
  - Pneumonia [Recovered/Resolved]
  - Blood sodium decreased [Unknown]
  - Respiratory tract infection [Unknown]
  - Specific gravity urine decreased [Unknown]
  - Blood creatinine increased [Unknown]

NARRATIVE: CASE EVENT DATE: 20150102
